FAERS Safety Report 9320895 (Version 1)
Quarter: 2013Q2

REPORT INFORMATION
  Report Type: Report from Study
  Country: AR (occurrence: AR)
  Receive Date: 20130531
  Receipt Date: 20130531
  Transmission Date: 20140414
  Serious: Yes (Other)
  Sender: FDA-Public Use
  Company Number: PHHY2013AR054343

PATIENT
  Sex: Female

DRUGS (2)
  1. ONBREZ [Suspect]
     Indication: DYSPNOEA
     Dosage: 150 UG, QD
     Route: 048
  2. ONBREZ [Suspect]
     Indication: OFF LABEL USE

REACTIONS (2)
  - Choking [Recovered/Resolved]
  - Dyspnoea [Recovered/Resolved]
